FAERS Safety Report 6737342-0 (Version None)
Quarter: 2010Q2

REPORT INFORMATION
  Report Type: 
  Country: None (occurrence: None)
  Receive Date: 20100521
  Receipt Date: 20100521
  Transmission Date: 20101027
  Serious: Yes (Life-Threatening)
  Sender: FDA-Public Use
  Company Number: None

PATIENT
  Age: 72 Year
  Sex: Female

DRUGS (2)
  1. TARCEVA [Suspect]
     Indication: NEOPLASM MALIGNANT
     Dosage: 30 QD PO
     Route: 048
     Dates: start: 20090827, end: 20100509
  2. TEKTURNA [Suspect]
     Indication: BLOOD PRESSURE
     Dates: start: 20100510, end: 20100520

REACTIONS (4)
  - CIRCUMSTANCE OR INFORMATION CAPABLE OF LEADING TO MEDICATION ERROR [None]
  - MEDICATION ERROR [None]
  - PRODUCT NAME CONFUSION [None]
  - WRONG DRUG ADMINISTERED [None]
